FAERS Safety Report 5305853-0 (Version None)
Quarter: 2007Q2

REPORT INFORMATION
  Report Type: 
  Country: None (occurrence: None)
  Receive Date: 20070424
  Receipt Date: 20070417
  Transmission Date: 20071010
  Serious: Yes (Other)
  Sender: FDA-Public Use
  Company Number: PHHO2007GB03394

PATIENT
  Sex: Female
  Weight: 60 kg

DRUGS (4)
  1. ZOLEDRONIC ACID [Suspect]
     Indication: METASTASES TO BONE
     Dosage: 4 MG
     Route: 042
     Dates: start: 20040708, end: 20050422
  2. CALCIUM [Concomitant]
  3. VITAMIN D [Concomitant]
  4. ARIMIDEX [Concomitant]
     Indication: BREAST CANCER
     Dosage: 1 MG, QD
     Route: 048
     Dates: start: 20050709

REACTIONS (2)
  - OSTEONECROSIS [None]
  - PAIN IN JAW [None]
